FAERS Safety Report 8286800-9 (Version None)
Quarter: 2012Q2

REPORT INFORMATION
  Report Type: 
  Country: None (occurrence: None)
  Receive Date: 20120416
  Receipt Date: 20120404
  Transmission Date: 20120825
  Serious: Yes (Death, Life-Threatening, Hospitalization, Other)
  Sender: FDA-Public Use
  Company Number: GB-BRISTOL-MYERS SQUIBB COMPANY-16448532

PATIENT
  Age: 59 Year
  Sex: Male
  Weight: 131 kg

DRUGS (7)
  1. ACETAMINOPHEN [Concomitant]
     Indication: PAIN
     Route: 048
  2. YERVOY [Suspect]
     Indication: METASTATIC MALIGNANT MELANOMA
     Dosage: NO OF DOSES 2 2ND INF 10JAN12
     Route: 042
     Dates: start: 20111220
  3. LANSOPRAZOLE [Concomitant]
     Route: 048
  4. SIMVASTATIN [Concomitant]
     Indication: BLOOD CHOLESTEROL INCREASED
     Route: 048
  5. CANDESARTAN CILEXETIL [Concomitant]
     Indication: HYPERTENSION
     Route: 048
  6. AMLODIPINE [Concomitant]
     Indication: HYPERTENSION
     Route: 048
  7. NAPROXEN [Concomitant]
     Indication: PAIN
     Route: 048

REACTIONS (4)
  - INTESTINAL OBSTRUCTION [None]
  - RENAL FAILURE ACUTE [None]
  - DIARRHOEA [None]
  - WEIGHT DECREASED [None]
